FAERS Safety Report 5905059-8 (Version None)
Quarter: 2008Q4

REPORT INFORMATION
  Report Type: 
  Country: None (occurrence: None)
  Receive Date: 20081001
  Receipt Date: 20080919
  Transmission Date: 20090506
  Serious: Yes (Other)
  Sender: FDA-Public Use
  Company Number: US-WYE-H06065408

PATIENT
  Age: 63 Year
  Sex: Male

DRUGS (4)
  1. PRISTIQ [Suspect]
     Indication: DEPRESSION
     Route: 048
     Dates: start: 20080912
  2. SERTRALINE [Concomitant]
  3. ETHANOL [Suspect]
     Dosage: ^LARGER QUANTITY^
  4. WELLBUTRIN [Concomitant]

REACTIONS (5)
  - AGGRESSION [None]
  - ALCOHOL ABUSE [None]
  - ANGER [None]
  - HOSTILITY [None]
  - INCOHERENT [None]
